FAERS Safety Report 9461968 (Version 1)
Quarter: 2013Q3

REPORT INFORMATION
  Report Type: Report from Study
  Country: NZ (occurrence: NZ)
  Receive Date: 20130816
  Receipt Date: 20130816
  Transmission Date: 20140515
  Serious: Yes (Hospitalization, Other)
  Sender: FDA-Public Use
  Company Number: NZ-PFIZER INC-2013235381

PATIENT
  Sex: 0

DRUGS (2)
  1. CHAMPIX [Suspect]
     Indication: SMOKING CESSATION THERAPY
     Dosage: 0.5 MG, PER DAY (START PACK)
     Route: 064
  2. CHAMPIX [Suspect]
     Dosage: 2 MG, PER DAY (START PACK)
     Route: 064

REACTIONS (4)
  - Maternal exposure during pregnancy [Unknown]
  - Neonatal asphyxia [Unknown]
  - Lower respiratory tract infection [Unknown]
  - Arthritis bacterial [Unknown]
